FAERS Safety Report 8772056 (Version 2)
Quarter: 2013Q4

REPORT INFORMATION
  Report Type: Spontaneous
  Country: US (occurrence: US)
  Receive Date: 20120906
  Receipt Date: 20131101
  Transmission Date: 20140711
  Serious: No
  Sender: FDA-Public Use
  Company Number: US-009507513-1208USA005949

PATIENT
  Age: 47 Year
  Sex: Female
  Weight: 63.49 kg

DRUGS (1)
  1. NUVARING [Suspect]
     Indication: CONTRACEPTION
     Dosage: 3 WEEKS IN, 1 WEEK OUT
     Route: 067
     Dates: start: 20120805, end: 20120810

REACTIONS (4)
  - Muscle spasms [Unknown]
  - Muscle spasms [Recovered/Resolved]
  - Urinary incontinence [Unknown]
  - Device expulsion [Unknown]
